FAERS Safety Report 12922627 (Version 1)
Quarter: 2016Q4

REPORT INFORMATION
  Report Type: Report from Study
  Country: ZA (occurrence: ZA)
  Receive Date: 20161109
  Receipt Date: 20161109
  Transmission Date: 20170207
  Serious: Yes (Death, Hospitalization, Other)
  Sender: FDA-Public Use
  Company Number: ZA-AMGEN-ZAFSL2016153722

PATIENT
  Age: 35 Year
  Sex: Male

DRUGS (1)
  1. ARANESP [Suspect]
     Active Substance: DARBEPOETIN ALFA
     Indication: CHRONIC KIDNEY DISEASE
     Dosage: 30 MUG, QWK
     Route: 058
     Dates: start: 20140223, end: 20161026

REACTIONS (7)
  - Sepsis [Unknown]
  - Pulmonary oedema [Unknown]
  - Chronic kidney disease [Unknown]
  - Multiple organ dysfunction syndrome [Fatal]
  - Acidosis [Unknown]
  - Cardiomyopathy [Unknown]
  - Myocardiac abscess [Unknown]

NARRATIVE: CASE EVENT DATE: 20161026
